FAERS Safety Report 9449030 (Version 1)
Quarter: 2013Q3

REPORT INFORMATION
  Report Type: Spontaneous
  Country: CO (occurrence: None)
  Receive Date: 20130806
  Receipt Date: 20130806
  Transmission Date: 20140515
  Serious: Yes (Death, Hospitalization)
  Sender: FDA-Public Use
  Company Number: CO-JNJFOC-20130715386

PATIENT
  Age: 78 Year
  Sex: Male

DRUGS (1)
  1. DACOGEN (DECITABINE) LYOPHILIZED POWDER [Suspect]
     Indication: MYELODYSPLASTIC SYNDROME
     Dates: start: 20130704

REACTIONS (7)
  - Platelet count decreased [None]
  - Haematuria [None]
  - Pneumonia [None]
  - Dyspnoea [None]
  - Generalised oedema [None]
  - Pulmonary oedema [None]
  - Cardiac arrest [None]
